FAERS Safety Report 16182824 (Version 2)
Quarter: 2019Q2

REPORT INFORMATION
  Report Type: Report from Study
  Country: CA (occurrence: CA)
  Receive Date: 20190411
  Receipt Date: 20190513
  Transmission Date: 20190711
  Serious: Yes (Other)
  Sender: FDA-Public Use
  Company Number: CA-GLAXOSMITHKLINE-CA2019GSK062900

PATIENT
  Sex: Female

DRUGS (2)
  1. MEPOLIZUMAB [Suspect]
     Active Substance: MEPOLIZUMAB
     Dosage: 100 MG, Z(MONTHLY)
     Route: 042
  2. MEPOLIZUMAB [Suspect]
     Active Substance: MEPOLIZUMAB
     Indication: ASTHMA
     Dosage: 100 MG, UNK

REACTIONS (8)
  - Musculoskeletal discomfort [Unknown]
  - Nasopharyngitis [Unknown]
  - Visual impairment [Unknown]
  - Knee operation [Unknown]
  - Cataract [Unknown]
  - Wheezing [Unknown]
  - Cough [Unknown]
  - Condition aggravated [Unknown]
